FAERS Safety Report 9013542 (Version 2)
Quarter: 2014Q2

REPORT INFORMATION
  Report Type: Report from Study
  Country: BD (occurrence: BD)
  Receive Date: 20130115
  Receipt Date: 20140408
  Transmission Date: 20141212
  Serious: Yes (Death)
  Sender: FDA-Public Use
  Company Number: PHHY2013BD002953

PATIENT
  Age: 86 Year
  Sex: Male

DRUGS (2)
  1. EXELON PATCH [Suspect]
     Indication: DEMENTIA
     Dosage: 4.6 MG/ 24 HOURS
     Route: 062
     Dates: start: 200910, end: 200911
  2. ANTIHYPERTENSIVE DRUGS [Concomitant]
     Indication: HYPERTENSION
     Dosage: UNK UKN, UNK

REACTIONS (4)
  - Cerebrovascular accident [Fatal]
  - Sensory loss [Fatal]
  - Aphagia [Fatal]
  - Infrequent bowel movements [Fatal]
